FAERS Safety Report 18612002 (Version 1)
Quarter: 2020Q4

REPORT INFORMATION
  Report Type: Spontaneous
  Country: CH (occurrence: CH)
  Receive Date: 20201214
  Receipt Date: 20201214
  Transmission Date: 20210114
  Serious: Yes (Hospitalization, Other)
  Sender: FDA-Public Use
  Company Number: CH-ABBVIE-20K-151-3685412-00

PATIENT
  Age: 36 Year
  Sex: Female
  Weight: 64 kg

DRUGS (3)
  1. RIFAXIMIN. [Concomitant]
     Active Substance: RIFAXIMIN
     Indication: PRODUCT USED FOR UNKNOWN INDICATION
  2. HUMIRA [Suspect]
     Active Substance: ADALIMUMAB
     Indication: COLITIS ULCERATIVE
     Route: 058
  3. PREDNISONE. [Concomitant]
     Active Substance: PREDNISONE
     Indication: PRODUCT USED FOR UNKNOWN INDICATION

REACTIONS (11)
  - Vision blurred [Unknown]
  - Maternal exposure during pregnancy [Unknown]
  - Generalised tonic-clonic seizure [Unknown]
  - Vertigo [Unknown]
  - Nausea [Unknown]
  - Central nervous system lesion [Unknown]
  - Headache [Unknown]
  - Demyelination [Not Recovered/Not Resolved]
  - Diarrhoea [Unknown]
  - Facial paresis [Unknown]
  - Vomiting [Unknown]

NARRATIVE: CASE EVENT DATE: 202011
